FAERS Safety Report 22062638 (Version 3)
Quarter: 2023Q1

REPORT INFORMATION
  Report Type: Spontaneous
  Country: TR (occurrence: TR)
  Receive Date: 20230306
  Receipt Date: 20230331
  Transmission Date: 20230418
  Serious: Yes (Hospitalization, Other)
  Sender: FDA-Public Use
  Company Number: None

PATIENT
  Age: 35 Year
  Sex: Female

DRUGS (2)
  1. ELLA [Suspect]
     Active Substance: ULIPRISTAL ACETATE
     Indication: Post coital contraception
     Route: 048
     Dates: start: 20230219, end: 20230219
  2. LEVOTHYROXINE SODIUM [Concomitant]
     Active Substance: LEVOTHYROXINE SODIUM
     Indication: Thyroid disorder

REACTIONS (9)
  - Dyspnoea [Recovering/Resolving]
  - Heart rate decreased [Recovering/Resolving]
  - Hypoaesthesia [Recovering/Resolving]
  - Dry throat [Recovered/Resolved]
  - Syncope [Recovering/Resolving]
  - Disorientation [Recovered/Resolved]
  - Tremor [Recovering/Resolving]
  - Exposure via breast milk [Unknown]
  - Off label use [Unknown]

NARRATIVE: CASE EVENT DATE: 20230219
